FAERS Safety Report 11403490 (Version 1)
Quarter: 2015Q3

REPORT INFORMATION
  Report Type: Report from Study
  Country: JP (occurrence: JP)
  Receive Date: 20150821
  Receipt Date: 20150821
  Transmission Date: 20151125
  Serious: Yes (Hospitalization)
  Sender: FDA-Public Use
  Company Number: JP-JNJFOC-20150813114

PATIENT
  Age: 50 Year
  Sex: Male

DRUGS (8)
  1. NORVIR [Suspect]
     Active Substance: RITONAVIR
     Indication: HIV INFECTION
     Route: 048
     Dates: start: 20100416, end: 20141005
  2. TRUVADA [Suspect]
     Active Substance: EMTRICITABINE\TENOFOVIR DISOPROXIL FUMARATE
     Indication: HIV INFECTION
     Route: 048
     Dates: start: 20090123
  3. WARFARIN [Concomitant]
     Active Substance: WARFARIN
     Indication: PULMONARY EMBOLISM
     Route: 048
     Dates: start: 20141006
  4. RILPIVIRINE [Concomitant]
     Active Substance: RILPIVIRINE
     Indication: HIV INFECTION
     Route: 048
     Dates: start: 20141107, end: 20141120
  5. HEPARIN [Concomitant]
     Active Substance: HEPARIN SODIUM
     Indication: PULMONARY EMBOLISM
     Route: 065
     Dates: start: 20141006, end: 20141016
  6. PREZISTA [Suspect]
     Active Substance: DARUNAVIR ETHANOLATE
     Indication: HIV INFECTION
     Route: 048
     Dates: start: 20100416, end: 20141015
  7. PREZISTA [Suspect]
     Active Substance: DARUNAVIR ETHANOLATE
     Indication: HIV INFECTION
     Route: 048
     Dates: start: 20090123, end: 20100415
  8. NORVIR [Suspect]
     Active Substance: RITONAVIR
     Indication: HIV INFECTION
     Route: 048
     Dates: start: 20090123, end: 20100415

REACTIONS (2)
  - Pulmonary embolism [Recovering/Resolving]
  - Depressed mood [Recovered/Resolved]

NARRATIVE: CASE EVENT DATE: 20141004
